FAERS Safety Report 15668239 (Version 1)
Quarter: 2018Q4

REPORT INFORMATION
  Report Type: Spontaneous
  Country: GB (occurrence: GB)
  Receive Date: 20181129
  Receipt Date: 20181129
  Transmission Date: 20190205
  Serious: Yes (Other)
  Sender: FDA-Public Use
  Company Number: GB-ACCORD-093952

PATIENT
  Age: 55 Year
  Sex: Male

DRUGS (12)
  1. PREGABALIN. [Concomitant]
     Active Substance: PREGABALIN
  2. DOCUSATE/DOCUSATE CALCIUM/DOCUSATE POTASSIUM/DOCUSATE SODIUM [Concomitant]
  3. DEXAMETHASONE. [Concomitant]
     Active Substance: DEXAMETHASONE
  4. TINZAPARIN/TINZAPARIN SODIUM [Concomitant]
  5. ISOPROPYL MYRISTATE/PARAFFIN/LIQUID [Concomitant]
  6. AMITRIPTYLINE [Suspect]
     Active Substance: AMITRIPTYLINE
     Indication: NECK PAIN
     Route: 048
     Dates: start: 20171227, end: 20180102
  7. ALFENTANIL. [Concomitant]
     Active Substance: ALFENTANIL
  8. PARACETAMOL [Concomitant]
     Active Substance: ACETAMINOPHEN
  9. MIRTAZAPINE. [Concomitant]
     Active Substance: MIRTAZAPINE
  10. OMEPRAZOLE. [Concomitant]
     Active Substance: OMEPRAZOLE
  11. BIOTENE DRY MOUTH [Concomitant]
  12. METOCLOPRAMIDE. [Concomitant]
     Active Substance: METOCLOPRAMIDE

REACTIONS (9)
  - Ear swelling [Recovering/Resolving]
  - Petechiae [Recovering/Resolving]
  - Oral mucosal blistering [Recovering/Resolving]
  - Erythema [Recovering/Resolving]
  - Off label use [Unknown]
  - Dysphagia [Recovering/Resolving]
  - Erythema multiforme [Recovering/Resolving]
  - Rash maculo-papular [Recovering/Resolving]
  - Swelling face [Recovering/Resolving]

NARRATIVE: CASE EVENT DATE: 20180101
